FAERS Safety Report 10100471 (Version 2)
Quarter: 2014Q2

REPORT INFORMATION
  Report Type: Spontaneous
  Country: JP (occurrence: JP)
  Receive Date: 20140423
  Receipt Date: 20140501
  Transmission Date: 20141212
  Serious: Yes (Death, Other)
  Sender: FDA-Public Use
  Company Number: PHHY2014JP048869

PATIENT
  Sex: Female

DRUGS (1)
  1. SANDIMMUN [Suspect]
     Indication: KIDNEY TRANSPLANT REJECTION
     Dosage: 14 MG, DAILY IN TWO DIVIDED DOSES (3 HOURS PER DOSE)
     Route: 041

REACTIONS (7)
  - Hyperammonaemia [Fatal]
  - Altered state of consciousness [Fatal]
  - Renal impairment [Fatal]
  - Multi-organ failure [Fatal]
  - Blood albumin decreased [Fatal]
  - White blood cell count decreased [Unknown]
  - Haemoglobin decreased [Unknown]
